FAERS Safety Report 17112482 (Version 1)
Quarter: 2019Q4

REPORT INFORMATION
  Report Type: Spontaneous
  Country: US (occurrence: US)
  Receive Date: 20191204
  Receipt Date: 20191204
  Transmission Date: 20200122
  Serious: No
  Sender: FDA-Public Use
  Company Number: US-TEVA-2019-US-1146750

PATIENT
  Sex: Female

DRUGS (5)
  1. CELEXA [Concomitant]
     Active Substance: CITALOPRAM HYDROBROMIDE
  2. RYTARY [Suspect]
     Active Substance: CARBIDOPA\LEVODOPA
     Route: 065
  3. AZILECT [Suspect]
     Active Substance: RASAGILINE MESYLATE
     Route: 065
     Dates: end: 201910
  4. VITAMIN D3 [Concomitant]
     Active Substance: CHOLECALCIFEROL
  5. GOCOVRI [Suspect]
     Active Substance: AMANTADINE
     Indication: DYSKINESIA
     Dosage: 274 MILLIGRAM DAILY;
     Route: 048
     Dates: start: 20180614

REACTIONS (1)
  - Orthostatic hypotension [Not Recovered/Not Resolved]
